FAERS Safety Report 8010567-2 (Version None)
Quarter: 2011Q4

REPORT INFORMATION
  Report Type: 
  Country: None (occurrence: None)
  Receive Date: 20111228
  Receipt Date: 20111215
  Transmission Date: 20120403
  Serious: Yes (Hospitalization)
  Sender: FDA-Public Use
  Company Number: PHHY2011FR109650

PATIENT
  Age: 70 Year
  Sex: Female

DRUGS (1)
  1. RASILEZ HCT [Suspect]
     Dosage: UNK

REACTIONS (3)
  - ARRHYTHMIA [None]
  - HYPOKALAEMIA [None]
  - MALAISE [None]
